FAERS Safety Report 12998258 (Version 1)
Quarter: 2016Q4

REPORT INFORMATION
  Report Type: Spontaneous
  Country: US (occurrence: US)
  Receive Date: 20161205
  Receipt Date: 20161205
  Transmission Date: 20170207
  Serious: No
  Sender: FDA-Public Use
  Company Number: None

PATIENT
  Age: 3 Week
  Sex: Male

DRUGS (2)
  1. LOVENOX [Suspect]
     Active Substance: ENOXAPARIN SODIUM
  2. INSULIN SYRINGE [Suspect]
     Active Substance: DEVICE

REACTIONS (2)
  - Circumstance or information capable of leading to medication error [None]
  - Drug prescribing error [None]
